FAERS Safety Report 26024018 (Version 2)
Quarter: 2025Q4

REPORT INFORMATION
  Report Type: Spontaneous
  Country: SY (occurrence: SY)
  Receive Date: 20251111
  Receipt Date: 20251119
  Transmission Date: 20260118
  Serious: Yes (Life-Threatening, Other)
  Sender: ALKEM
  Company Number: SY-ALKEM LABORATORIES LIMITED-SY-ALKEM-2025-11785

PATIENT
  Age: 22 Year
  Sex: Female

DRUGS (1)
  1. METFORMIN HYDROCHLORIDE [Suspect]
     Active Substance: METFORMIN HYDROCHLORIDE
     Indication: Weight decreased
     Dosage: 300 MILLIGRAM, QD (HIGH DOSE)
     Route: 065

REACTIONS (5)
  - Multiple organ dysfunction syndrome [Recovering/Resolving]
  - Drug abuse [Unknown]
  - Lactic acidosis [Recovering/Resolving]
  - Intentional product misuse [Unknown]
  - Toxicity to various agents [Recovering/Resolving]
